FAERS Safety Report 19807176 (Version 1)
Quarter: 2021Q3

REPORT INFORMATION
  Report Type: Spontaneous
  Country: JP (occurrence: JP)
  Receive Date: 20210909
  Receipt Date: 20210909
  Transmission Date: 20211014
  Serious: Yes (Hospitalization, Other)
  Sender: FDA-Public Use
  Company Number: JP-MICRO LABS LIMITED-ML2021-02160

PATIENT
  Age: 48 Year
  Sex: Male
  Weight: 52 kg

DRUGS (10)
  1. CLOBAZAM. [Suspect]
     Active Substance: CLOBAZAM
     Indication: HEMICONVULSION-HEMIPLEGIA-EPILEPSY SYNDROME
  2. CARBAMAZEPINE. [Concomitant]
     Active Substance: CARBAMAZEPINE
  3. PHENOBARBITAL. [Concomitant]
     Active Substance: PHENOBARBITAL
  4. LEVETIRACETAM. [Concomitant]
     Active Substance: LEVETIRACETAM
  5. ZONISAMIDE. [Concomitant]
     Active Substance: ZONISAMIDE
  6. LAMOTRIGINE. [Concomitant]
     Active Substance: LAMOTRIGINE
  7. PHENYTOIN. [Suspect]
     Active Substance: PHENYTOIN
  8. ETHOSUXIMIDE. [Concomitant]
     Active Substance: ETHOSUXIMIDE
  9. CLONAZEPAM. [Concomitant]
     Active Substance: CLONAZEPAM
  10. VALPROATE SODIUM. [Concomitant]
     Active Substance: VALPROATE SODIUM

REACTIONS (10)
  - Nystagmus [Recovering/Resolving]
  - Drug level increased [Unknown]
  - Hyporeflexia [Not Recovered/Not Resolved]
  - Dysmetria [Unknown]
  - Hypercapnia [Unknown]
  - Clonus [Unknown]
  - Neuropathy peripheral [Unknown]
  - Cerebellar atrophy [Unknown]
  - Drug interaction [Unknown]
  - Hypoventilation [Recovered/Resolved]
